FAERS Safety Report 5252395-7 (Version None)
Quarter: 2007Q1

REPORT INFORMATION
  Report Type: 
  Country: None (occurrence: None)
  Receive Date: 20070301
  Receipt Date: 20061103
  Transmission Date: 20070707
  Serious: No
  Sender: FDA-Public Use
  Company Number: US-BRISTOL-MYERS SQUIBB COMPANY-13566609

PATIENT
  Sex: Female

DRUGS (3)
  1. CYTOXAN [Suspect]
     Indication: BREAST CANCER
  2. TAXOL [Suspect]
     Indication: BREAST CANCER
  3. ADRIAMYCIN PFS [Concomitant]

REACTIONS (2)
  - HERPES SIMPLEX [None]
  - NEUTROPENIA [None]
